FAERS Safety Report 13533727 (Version 3)
Quarter: 2019Q2

REPORT INFORMATION
  Report Type: Report from Study
  Country: CA (occurrence: CA)
  Receive Date: 20170510
  Receipt Date: 20190417
  Transmission Date: 20190711
  Serious: Yes (Other)
  Sender: FDA-Public Use
  Company Number: CA-GLAXOSMITHKLINE-CA2017GSK068453

PATIENT
  Age: 54 Year
  Sex: Male

DRUGS (11)
  1. SEPTRA [Suspect]
     Active Substance: SULFAMETHOXAZOLE\TRIMETHOPRIM
     Indication: PRODUCT USED FOR UNKNOWN INDICATION
     Dosage: UNK
  2. MONTELUKAST [Suspect]
     Active Substance: MONTELUKAST SODIUM
     Indication: PRODUCT USED FOR UNKNOWN INDICATION
     Dosage: UNK
  3. ADVAIR HFA [Suspect]
     Active Substance: FLUTICASONE PROPIONATE\SALMETEROL XINAFOATE
     Indication: PRODUCT USED FOR UNKNOWN INDICATION
     Dosage: 2 PUFF(S), BID
     Dates: start: 1990
  4. PULMICORT TURBUHALER [Suspect]
     Active Substance: BUDESONIDE
     Indication: PRODUCT USED FOR UNKNOWN INDICATION
     Dosage: UNK
  5. TACROLIMUS. [Suspect]
     Active Substance: TACROLIMUS
     Indication: PRODUCT USED FOR UNKNOWN INDICATION
     Dosage: UNK
  6. PREDNISONE. [Suspect]
     Active Substance: PREDNISONE
     Indication: PRODUCT USED FOR UNKNOWN INDICATION
     Dosage: UNK
  7. AZATHIOPRINE. [Suspect]
     Active Substance: AZATHIOPRINE
     Indication: PRODUCT USED FOR UNKNOWN INDICATION
     Dosage: UNK
  8. SALBUTAMOL SULPHATE [Suspect]
     Active Substance: ALBUTEROL SULFATE
     Indication: PRODUCT USED FOR UNKNOWN INDICATION
     Dosage: UNK
  9. XOLAIR [Suspect]
     Active Substance: OMALIZUMAB
     Indication: PRODUCT USED FOR UNKNOWN INDICATION
     Dosage: UNK
  10. AZITHROMYCIN ANHYDROUS. [Concomitant]
     Active Substance: AZITHROMYCIN ANHYDROUS
     Indication: PRODUCT USED FOR UNKNOWN INDICATION
     Dosage: 250 MG, Z
     Route: 048
  11. NUCALA [Suspect]
     Active Substance: MEPOLIZUMAB
     Indication: ASTHMA
     Dosage: UNK

REACTIONS (24)
  - Nasopharyngitis [Recovering/Resolving]
  - Blood immunoglobulin E increased [Unknown]
  - Nasal polyps [Unknown]
  - Spinal compression fracture [Unknown]
  - Iron deficiency anaemia [Unknown]
  - Psoriasis [Unknown]
  - Post thrombotic syndrome [Unknown]
  - Arthralgia [Unknown]
  - Chronic kidney disease [Unknown]
  - Gastrooesophageal reflux disease [Unknown]
  - Eosinophilia [Unknown]
  - Hip arthroplasty [Unknown]
  - Lung transplant [Unknown]
  - Nasal disorder [Unknown]
  - Osteoporosis [Unknown]
  - Osteoarthritis [Unknown]
  - Chronic sinusitis [Unknown]
  - Blood count abnormal [Unknown]
  - Sinus congestion [Unknown]
  - Cough [Unknown]
  - Deep vein thrombosis [Unknown]
  - Joint dislocation [Unknown]
  - Complications of transplanted lung [Unknown]
  - Obesity [Unknown]

NARRATIVE: CASE EVENT DATE: 20131213
